FAERS Safety Report 12009914 (Version 2)
Quarter: 2016Q1

REPORT INFORMATION
  Report Type: Spontaneous
  Country: JP (occurrence: JP)
  Receive Date: 20160205
  Receipt Date: 20160212
  Transmission Date: 20160526
  Serious: Yes (Other)
  Sender: FDA-Public Use
  Company Number: PHJP2016JP001593

PATIENT
  Age: 16 Year
  Sex: Female

DRUGS (1)
  1. PAZOPANIB [Suspect]
     Active Substance: PAZOPANIB
     Indication: ALVEOLAR RHABDOMYOSARCOMA
     Dosage: UNK
     Route: 048

REACTIONS (6)
  - Disease recurrence [Unknown]
  - Abdominal pain [Unknown]
  - Malaise [Unknown]
  - Hair colour changes [Unknown]
  - Central nervous system lesion [Unknown]
  - Diarrhoea [Unknown]
